FAERS Safety Report 14697220 (Version 1)
Quarter: 2018Q1

REPORT INFORMATION
  Report Type: Spontaneous
  Country: US (occurrence: US)
  Receive Date: 20180330
  Receipt Date: 20180330
  Transmission Date: 20180509
  Serious: No
  Sender: FDA-Public Use
  Company Number: US-SA-2017SA123517

PATIENT
  Sex: Male

DRUGS (1)
  1. ALLEGRA ALLERGY [Suspect]
     Active Substance: FEXOFENADINE HYDROCHLORIDE
     Indication: SINUS DISORDER
     Dosage: TOOK 2 TABLETS WHILE THEY WERE STILL IN DATE AND 2 OR 3 TABLETS AFTER THEY WERE OUT OF DATE.
     Route: 048
     Dates: start: 201603, end: 201701

REACTIONS (3)
  - Therapeutic response decreased [Unknown]
  - Expired product administered [Unknown]
  - Product outer packaging issue [Unknown]
